FAERS Safety Report 11820534 (Version 2)
Quarter: 2016Q3

REPORT INFORMATION
  Report Type: Spontaneous
  Country: US (occurrence: US)
  Receive Date: 20151210
  Receipt Date: 20160725
  Transmission Date: 20161109
  Serious: No
  Sender: FDA-Public Use
  Company Number: US-JNJFOC-20150312505

PATIENT
  Age: 70 Year
  Sex: Male
  Weight: 65 kg

DRUGS (11)
  1. TAMSULOSIN [Concomitant]
     Active Substance: TAMSULOSIN
  2. PREDNISONE. [Concomitant]
     Active Substance: PREDNISONE
  3. METOPROLOL. [Concomitant]
     Active Substance: METOPROLOL
  4. IMBRUVICA [Suspect]
     Active Substance: IBRUTINIB
     Indication: CHRONIC LYMPHOCYTIC LEUKAEMIA
     Route: 048
  5. IMBRUVICA [Suspect]
     Active Substance: IBRUTINIB
     Indication: CHRONIC LYMPHOCYTIC LEUKAEMIA
     Route: 048
     Dates: start: 20141130
  6. ALUMINUM HYDROXIDE. [Concomitant]
     Active Substance: ALUMINUM HYDROXIDE
  7. TRILIPIX [Concomitant]
     Active Substance: FENOFIBRIC ACID
  8. VALTREX [Concomitant]
     Active Substance: VALACYCLOVIR HYDROCHLORIDE
  9. IMBRUVICA [Suspect]
     Active Substance: IBRUTINIB
     Indication: CHRONIC LYMPHOCYTIC LEUKAEMIA
     Dosage: EVERY OTHER DAY
     Route: 048
  10. FINASTERIDE. [Concomitant]
     Active Substance: FINASTERIDE
  11. ALLOPURINOL. [Concomitant]
     Active Substance: ALLOPURINOL

REACTIONS (8)
  - Skin mass [Unknown]
  - Neutropenia [Unknown]
  - Fungal infection [Unknown]
  - Haematoma [Recovering/Resolving]
  - Conjunctivitis [Not Recovered/Not Resolved]
  - Periorbital haematoma [Recovering/Resolving]
  - Incorrect dose administered [Unknown]
  - Off label use [Unknown]

NARRATIVE: CASE EVENT DATE: 201411
